FAERS Safety Report 12791260 (Version 1)
Quarter: 2016Q3

REPORT INFORMATION
  Report Type: Spontaneous
  Country: US (occurrence: US)
  Receive Date: 20160929
  Receipt Date: 20160929
  Transmission Date: 20161109
  Serious: No
  Sender: FDA-Public Use
  Company Number: None

PATIENT
  Age: 33 Year
  Sex: Female
  Weight: 64.86 kg

DRUGS (1)
  1. MIRENA [Suspect]
     Active Substance: LEVONORGESTREL
     Dates: start: 20160712, end: 20160822

REACTIONS (6)
  - Mood swings [None]
  - Hormone level abnormal [None]
  - Haemorrhage [None]
  - Embedded device [None]
  - Acne [None]
  - Amenorrhoea [None]

NARRATIVE: CASE EVENT DATE: 20160822
